FAERS Safety Report 9799346 (Version 1)
Quarter: 2014Q1

REPORT INFORMATION
  Report Type: Spontaneous
  Country: US (occurrence: US)
  Receive Date: 20140106
  Receipt Date: 20140106
  Transmission Date: 20141002
  Serious: Yes (Other)
  Sender: FDA-Public Use
  Company Number: US-PFIZER INC-2013374438

PATIENT
  Age: 71 Year
  Sex: Male
  Weight: 92.97 kg

DRUGS (5)
  1. ROBITUSSIN COUGH AND CHEST CONGESTION DM MAX [Suspect]
     Indication: COUGH
     Dosage: 10 ML, EVERY 4 HRS
     Route: 048
     Dates: start: 20131228
  2. ROBITUSSIN COUGH AND CHEST CONGESTION DM MAX [Suspect]
     Indication: PULMONARY CONGESTION
  3. VITAMIN C [Concomitant]
     Dosage: UNK
  4. VITAMIN D [Concomitant]
     Dosage: UNK
  5. VITAMIN E [Concomitant]
     Dosage: UNK

REACTIONS (7)
  - Drug ineffective [Unknown]
  - Pulmonary oedema [Unknown]
  - Pulmonary congestion [Unknown]
  - Rhinorrhoea [Unknown]
  - Sinus disorder [Unknown]
  - Pain [Unknown]
  - Cough [Unknown]
